FAERS Safety Report 24141814 (Version 1)
Quarter: 2024Q3

REPORT INFORMATION
  Report Type: Spontaneous
  Country: US (occurrence: US)
  Receive Date: 20240726
  Receipt Date: 20240726
  Transmission Date: 20241017
  Serious: Yes (Other)
  Sender: LABORATOIRES SERB
  Company Number: US-SERB S.A.S.-2159652

PATIENT
  Age: 60 Year
  Sex: Female

DRUGS (5)
  1. VISTOGARD [Suspect]
     Active Substance: URIDINE TRIACETATE
     Indication: Diarrhoea
  2. VISTOGARD [Suspect]
     Active Substance: URIDINE TRIACETATE
     Indication: Chemotherapy toxicity attenuation
  3. VISTOGARD [Suspect]
     Active Substance: URIDINE TRIACETATE
     Indication: Palmar-plantar erythrodysaesthesia syndrome
  4. VISTOGARD [Suspect]
     Active Substance: URIDINE TRIACETATE
     Indication: Mucosal inflammation
  5. CAPECITABINE [Suspect]
     Active Substance: CAPECITABINE

REACTIONS (1)
  - Hypokalaemia [Unknown]
